FAERS Safety Report 4729903-5 (Version None)
Quarter: 2005Q3

REPORT INFORMATION
  Report Type: 
  Country: None (occurrence: None)
  Receive Date: 20050729
  Receipt Date: 20050729
  Transmission Date: 20060218
  Serious: No
  Sender: FDA-Public Use
  Company Number: None

PATIENT
  Age: 96 Year
  Sex: Female
  Weight: 67.1324 kg

DRUGS (3)
  1. ZYMAR [Suspect]
     Dosage: TOOK 3X 1 DAY
  2. ACULAR [Suspect]
  3. PRED FORTE [Suspect]

REACTIONS (5)
  - ASTHENIA [None]
  - BEDRIDDEN [None]
  - DIZZINESS [None]
  - MALAISE [None]
  - NAUSEA [None]
